FAERS Safety Report 6783549-6 (Version None)
Quarter: 2010Q2

REPORT INFORMATION
  Report Type: 
  Country: None (occurrence: None)
  Receive Date: 20100622
  Receipt Date: 20100611
  Transmission Date: 20101027
  Serious: Yes (Hospitalization)
  Sender: FDA-Public Use
  Company Number: US-SANOFI-AVENTIS-2010SA034358

PATIENT
  Sex: Female

DRUGS (6)
  1. LANTUS [Suspect]
     Indication: TYPE 2 DIABETES MELLITUS
     Route: 058
  2. APIDRA [Suspect]
     Indication: TYPE 2 DIABETES MELLITUS
     Dosage: 8 TO 10 UNITS THREE TIMES A DAY
     Route: 058
  3. SOLOSTAR [Suspect]
     Indication: TYPE 2 DIABETES MELLITUS
  4. SOLOSTAR [Suspect]
  5. OPTICLICK [Suspect]
     Indication: TYPE 2 DIABETES MELLITUS
  6. OPTICLICK [Suspect]

REACTIONS (2)
  - INJECTION SITE HAEMATOMA [None]
  - PAIN IN EXTREMITY [None]
